FAERS Safety Report 19057300 (Version 1)
Quarter: 2021Q1

REPORT INFORMATION
  Report Type: Spontaneous
  Country: US (occurrence: US)
  Receive Date: 20210324
  Receipt Date: 20210324
  Transmission Date: 20210420
  Serious: No
  Sender: FDA-Public Use
  Company Number: NVSC2021US064010

PATIENT
  Sex: Female
  Weight: 48.99 kg

DRUGS (1)
  1. XIIDRA [Suspect]
     Active Substance: LIFITEGRAST
     Indication: DRY EYE
     Dosage: 1 GTT, BID (ONCE DAILY OR USE AT EARLIER TIME)
     Route: 065
     Dates: start: 20210307

REACTIONS (1)
  - Nightmare [Recovered/Resolved with Sequelae]
